FAERS Safety Report 18322216 (Version 7)
Quarter: 2021Q3

REPORT INFORMATION
  Report Type: Spontaneous
  Country: US (occurrence: US)
  Receive Date: 20200928
  Receipt Date: 20210813
  Transmission Date: 20211014
  Serious: Yes (Hospitalization, Other)
  Sender: FDA-Public Use
  Company Number: US-SA-2020SA264921

PATIENT
  Age: 48 Year
  Sex: Male

DRUGS (2)
  1. CAPRELSA [Suspect]
     Active Substance: VANDETANIB
     Indication: THYROID CANCER
     Dosage: 300 MG, QD
     Route: 048
     Dates: start: 20200904
  2. CAPRELSA [Suspect]
     Active Substance: VANDETANIB
     Dosage: 300 MG, QD
     Route: 048
     Dates: start: 20200904

REACTIONS (8)
  - Product dose omission issue [Unknown]
  - Pericardial effusion [Unknown]
  - Rash [Unknown]
  - Rash pruritic [Unknown]
  - Cardiac operation [Unknown]
  - Hospitalisation [Unknown]
  - Cardiac disorder [Unknown]
  - Surgery [Unknown]
